FAERS Safety Report 5630361-7 (Version None)
Quarter: 2008Q1

REPORT INFORMATION
  Report Type: 
  Country: None (occurrence: None)
  Receive Date: 20080219
  Receipt Date: 20080218
  Transmission Date: 20080703
  Serious: Yes (Death, Hospitalization, Other)
  Sender: FDA-Public Use
  Company Number: PHNU2007DE02940

PATIENT
  Age: 66 Year
  Sex: Female
  Weight: 56 kg

DRUGS (2)
  1. AREDIA [Suspect]
     Indication: METASTASES TO BONE
     Route: 042
     Dates: start: 20030101, end: 20050101
  2. ZOMETA [Suspect]
     Indication: METASTASES TO BONE
     Dosage: 4 MG, QMO
     Route: 042
     Dates: start: 20051201, end: 20070701

REACTIONS (13)
  - ASTHENIA [None]
  - BONE FISTULA [None]
  - ILEUS [None]
  - IMPAIRED HEALING [None]
  - INTESTINAL OPERATION [None]
  - OSTEONECROSIS [None]
  - PERITONEAL CARCINOMA [None]
  - PRIMARY SEQUESTRUM [None]
  - RADIOTHERAPY [None]
  - SEQUESTRECTOMY [None]
  - TOOTH EROSION [None]
  - TOOTH EXTRACTION [None]
  - TOOTH LOSS [None]
